FAERS Safety Report 6396729-9 (Version None)
Quarter: 2009Q4

REPORT INFORMATION
  Report Type: 
  Country: None (occurrence: None)
  Receive Date: 20091008
  Receipt Date: 20091008
  Transmission Date: 20100525
  Serious: Yes (Hospitalization)
  Sender: FDA-Public Use
  Company Number: None

PATIENT
  Sex: Female

DRUGS (2)
  1. VANCOMYCIN [Suspect]
     Dosage: 1.25G Q8H IV BOLUS
     Route: 040
     Dates: start: 20090416, end: 20090420
  2. VANCOMYCIN [Suspect]
     Dosage: 1.25G Q8H IV BOLUS
     Route: 040
     Dates: start: 20090427, end: 20090429

REACTIONS (2)
  - BLOOD CREATINE INCREASED [None]
  - DRUG LEVEL ABOVE THERAPEUTIC [None]
